FAERS Safety Report 7325293-2 (Version None)
Quarter: 2011Q1

REPORT INFORMATION
  Report Type: 
  Country: None (occurrence: None)
  Receive Date: 20110302
  Receipt Date: 20100712
  Transmission Date: 20110831
  Serious: Yes (Hospitalization, Other)
  Sender: FDA-Public Use
  Company Number: US-BAYER-201011743NA

PATIENT
  Sex: Female
  Weight: 72.727 kg

DRUGS (20)
  1. AZITHROMYCIN [Concomitant]
  2. TRAMADOL HYDROCHLORIDE [Concomitant]
     Dates: start: 20080216
  3. YAZ [Suspect]
     Route: 048
     Dates: start: 20090702, end: 20090802
  4. ZYBAN [Concomitant]
     Dosage: 300 MG (DAILY DOSE), BID, ORAL
     Route: 048
     Dates: start: 20080904, end: 20090408
  5. FIORICET [Concomitant]
     Indication: PAIN
     Dosage: 50-325-40MG
     Route: 048
     Dates: end: 20090408
  6. TORADOL [Concomitant]
     Dosage: UNK
     Dates: start: 20080217
  7. PULMICORT [Concomitant]
  8. YAZ [Suspect]
     Indication: PAIN
     Route: 048
     Dates: start: 20071120, end: 20090501
  9. PROFEN FORTE [Concomitant]
  10. YAZ [Suspect]
     Dosage: UNK
     Dates: start: 20090601
  11. AMOXICILLIN [Concomitant]
     Indication: VIRAL INFECTION
     Dosage: 500 MG (DAILY DOSE), ,
     Dates: start: 20080217
  12. YAZ [Suspect]
     Dosage: UNK
     Dates: start: 20090901
  13. TAMIFLU [Concomitant]
     Indication: VIRAL INFECTION
  14. COUGH AND COLD PREPARATIONS [Concomitant]
     Indication: VIRAL INFECTION
  15. NAPROXEN [Concomitant]
  16. PHENERGAN [Concomitant]
     Route: 048
     Dates: start: 20080701, end: 20090401
  17. UNCODEABLE UNCLASSIFIABLE [Concomitant]
     Indication: PRODUCT USED FOR UNKNOWN INDICATION
     Route: 048
     Dates: start: 20070717, end: 20090408
  18. PANTOPRAZOLE [Concomitant]
  19. IMITREX [Concomitant]
     Indication: MIGRAINE
     Dates: start: 20080401
  20. ACETAMINOPHEN [Concomitant]
     Indication: VIRAL INFECTION

REACTIONS (11)
  - PAIN [None]
  - PYREXIA [None]
  - ABDOMINAL PAIN UPPER [None]
  - ASTHENIA [None]
  - CHOLECYSTITIS [None]
  - VIRAL INFECTION [None]
  - VOMITING [None]
  - PANCREATITIS [None]
  - COUGH [None]
  - CHOLELITHIASIS [None]
  - NAUSEA [None]
